FAERS Safety Report 10019788 (Version 2)
Quarter: 2014Q3

REPORT INFORMATION
  Report Type: Spontaneous
  Country: IT (occurrence: IT)
  Receive Date: 20140318
  Receipt Date: 20140704
  Transmission Date: 20150326
  Serious: Yes (Hospitalization)
  Sender: FDA-Public Use
  Company Number: IT-009507513-1403ITA007157

PATIENT
  Age: 48 Year
  Sex: Male

DRUGS (9)
  1. ESKIM [Concomitant]
  2. COUMADIN [Concomitant]
     Active Substance: WARFARIN SODIUM
  3. ALDACTONE [Concomitant]
     Active Substance: SPIRONOLACTONE
  4. DELTACORTENE [Concomitant]
     Active Substance: PREDNISONE
  5. PARIET [Concomitant]
     Active Substance: RABEPRAZOLE SODIUM
  6. BETAHISTINE [Concomitant]
     Active Substance: BETAHISTINE
  7. ZETIA [Suspect]
     Active Substance: EZETIMIBE
     Dosage: 10 MG, QD
     Route: 048
     Dates: start: 20131111, end: 20131212
  8. LASIX [Concomitant]
     Active Substance: FUROSEMIDE
  9. FOLINA (FOLIC ACID) [Concomitant]
     Active Substance: FOLIC ACID

REACTIONS (3)
  - Pruritus [Recovered/Resolved]
  - Erythema [Recovered/Resolved]
  - Oedema peripheral [Recovered/Resolved]

NARRATIVE: CASE EVENT DATE: 20131111
